FAERS Safety Report 24345288 (Version 2)
Quarter: 2024Q4

REPORT INFORMATION
  Report Type: Spontaneous
  Country: CN (occurrence: CN)
  Receive Date: 20240920
  Receipt Date: 20241012
  Transmission Date: 20250114
  Serious: Yes (Other)
  Sender: MERCK KGAA
  Company Number: CN-Merck Healthcare KGaA-9291866

PATIENT
  Age: 42 Year
  Sex: Female

DRUGS (2)
  1. EUTHYROX [Suspect]
     Active Substance: LEVOTHYROXINE SODIUM
     Indication: Hypothyroidism
     Dosage: MANUFACTURED DATE WAS OCT 2020 (OF)
     Route: 048
     Dates: start: 202108
  2. EUTHYROX [Suspect]
     Active Substance: LEVOTHYROXINE SODIUM
     Dosage: MANUFACTURED DATE WAS 28 MAR 2021
     Route: 048
     Dates: start: 20220103

REACTIONS (11)
  - Near death experience [Recovered/Resolved]
  - Speech disorder [Recovered/Resolved]
  - Cardiovascular insufficiency [Recovered/Resolved]
  - General physical health deterioration [Recovered/Resolved]
  - Thyroid function test abnormal [Recovered/Resolved]
  - Circulatory collapse [Recovered/Resolved]
  - Hypothyroidism [Recovered/Resolved]
  - Heart rate irregular [Recovered/Resolved]
  - Poor quality sleep [Recovered/Resolved]
  - Tremor [Recovered/Resolved]
  - Drug ineffective [Unknown]

NARRATIVE: CASE EVENT DATE: 20210101
